FAERS Safety Report 8142253-2 (Version None)
Quarter: 2012Q1

REPORT INFORMATION
  Report Type: 
  Country: None (occurrence: None)
  Receive Date: 20120103
  Receipt Date: 20110830
  Transmission Date: 20120608
  Serious: No
  Sender: FDA-Public Use
  Company Number: AE-2011-001199

PATIENT
  Age: 58 Year
  Sex: Male
  Weight: 91.6266 kg

DRUGS (3)
  1. INCIVEK [Suspect]
     Dosage: 2250 (750 MG,3 IN 1 D),ORAL
     Route: 048
     Dates: start: 20110826
  2. PEGASYS [Concomitant]
  3. RIBAVIRIN [Concomitant]

REACTIONS (2)
  - DIARRHOEA [None]
  - ANORECTAL DISCOMFORT [None]
